FAERS Safety Report 6162858-8 (Version None)
Quarter: 2009Q2

REPORT INFORMATION
  Report Type: 
  Country: None (occurrence: None)
  Receive Date: 20090421
  Receipt Date: 20081114
  Transmission Date: 20091009
  Serious: No
  Sender: FDA-Public Use
  Company Number: US-ASTRAZENECA-2008UW25503

PATIENT
  Age: 81 Year
  Sex: Female
  Weight: 58.1 kg

DRUGS (6)
  1. TOPROL-XL [Suspect]
     Route: 048
  2. AMIODARONE HCL [Concomitant]
     Dosage: 200 MG
  3. COUMADIN [Concomitant]
     Indication: ATRIAL FIBRILLATION
     Dosage: 5 MG
  4. PRAVACHOL [Concomitant]
     Dosage: 40 MG
  5. EVISTA [Concomitant]
     Dosage: 60 MG
  6. LISINOPRIL [Concomitant]
     Dosage: 2.5 MG

REACTIONS (3)
  - ATRIAL FIBRILLATION [None]
  - DIZZINESS [None]
  - FALL [None]
